FAERS Safety Report 5187887-2 (Version None)
Quarter: 2006Q4

REPORT INFORMATION
  Report Type: 
  Country: None (occurrence: None)
  Receive Date: 20061221
  Receipt Date: 20061214
  Transmission Date: 20070319
  Serious: Yes (Other)
  Sender: FDA-Public Use
  Company Number: 2006SE06735

PATIENT
  Age: 2934 Day
  Sex: Male

DRUGS (7)
  1. PROPOFOL [Suspect]
     Indication: ANAESTHESIA
     Route: 042
     Dates: start: 20061201, end: 20061201
  2. FENTANYL [Suspect]
     Indication: ANAESTHESIA
     Route: 042
     Dates: start: 20061201, end: 20061201
  3. PERFALGAN [Suspect]
     Indication: ANAESTHESIA
     Route: 042
     Dates: start: 20061201, end: 20061201
  4. MIDAZOLAM HYDROCHLORIDE [Suspect]
     Indication: ANAESTHESIA
     Route: 042
     Dates: start: 20061201, end: 20061201
  5. NIMBEX [Suspect]
     Indication: ANAESTHESIA
     Route: 042
     Dates: start: 20061201, end: 20061201
  6. VANCOMYCIN [Suspect]
     Indication: INFECTION
     Route: 048
     Dates: start: 20061127, end: 20061201
  7. SEVOFLURAN BAXTER [Concomitant]

REACTIONS (3)
  - ANAPHYLACTIC REACTION [None]
  - FACE OEDEMA [None]
  - RASH [None]
